FAERS Safety Report 17157544 (Version 1)
Quarter: 2019Q4

REPORT INFORMATION
  Report Type: Spontaneous
  Country: US (occurrence: US)
  Receive Date: 20191213
  Receipt Date: 20191213
  Transmission Date: 20200122
  Serious: Yes (Death)
  Sender: FDA-Public Use
  Company Number: None

PATIENT
  Age: 71 Year
  Sex: Male

DRUGS (5)
  1. DICYCLOMINE 20MG TABLET [Concomitant]
     Active Substance: DICYCLOMINE HYDROCHLORIDE
     Dates: start: 20190718, end: 20191127
  2. SERTRALINE 100MG TABLET [Concomitant]
     Active Substance: SERTRALINE HYDROCHLORIDE
     Dates: start: 20190410, end: 20191127
  3. REPATHA [Suspect]
     Active Substance: EVOLOCUMAB
     Indication: HYPERCHOLESTEROLAEMIA
     Dosage: ?          OTHER FREQUENCY:EVERY TWO WEEKS;?
     Route: 058
     Dates: start: 20191016, end: 20191127
  4. REPATHA [Suspect]
     Active Substance: EVOLOCUMAB
     Indication: SPONDYLOARTHROPATHY
     Dosage: ?          OTHER FREQUENCY:EVERY TWO WEEKS;?
     Route: 058
     Dates: start: 20191016, end: 20191127
  5. TRAZODONE 150MG TABLET [Concomitant]
     Dates: start: 20190410, end: 20191127

REACTIONS (1)
  - Death [None]

NARRATIVE: CASE EVENT DATE: 20191209
